FAERS Safety Report 6287284-2 (Version None)
Quarter: 2009Q3

REPORT INFORMATION
  Report Type: 
  Country: None (occurrence: None)
  Receive Date: 20090728
  Receipt Date: 20090721
  Transmission Date: 20100115
  Serious: Yes (Hospitalization)
  Sender: FDA-Public Use
  Company Number: JP-B.I. PHARMACEUTICALS,INC./RIDGEFIELD-2009-DE-04951GD

PATIENT
  Age: 77 Year
  Sex: Female

DRUGS (1)
  1. DIPYRIDAMOLE [Suspect]

REACTIONS (13)
  - BLOOD PRESSURE SYSTOLIC DECREASED [None]
  - BRAIN CONTUSION [None]
  - CONTUSION [None]
  - FRACTURED ISCHIUM [None]
  - HEPATIC HAEMORRHAGE [None]
  - ILIUM FRACTURE [None]
  - INTRA-ABDOMINAL HAEMORRHAGE [None]
  - PELVIC FRACTURE [None]
  - PELVIC HAEMATOMA [None]
  - RETROPERITONEAL HAEMORRHAGE [None]
  - ROAD TRAFFIC ACCIDENT [None]
  - SHOCK [None]
  - SUBARACHNOID HAEMORRHAGE [None]
